FAERS Safety Report 17893493 (Version 2)
Quarter: 2020Q2

REPORT INFORMATION
  Report Type: Spontaneous
  Country: CN (occurrence: CN)
  Receive Date: 20200615
  Receipt Date: 20200622
  Transmission Date: 20200714
  Serious: Yes (Other)
  Sender: FDA-Public Use
  Company Number: CN-APOTEX-2020AP012205

PATIENT
  Age: 41 Year
  Sex: Male

DRUGS (10)
  1. SEROXAT [Suspect]
     Active Substance: PAROXETINE HYDROCHLORIDE
     Dosage: 10 MG, QD
     Route: 048
     Dates: start: 2013
  2. SEROXAT [Suspect]
     Active Substance: PAROXETINE HYDROCHLORIDE
     Indication: PANIC DISORDER
     Dosage: 20 MG, QD
     Route: 048
     Dates: start: 2009, end: 2016
  3. TANDOSPIRONE [Concomitant]
     Active Substance: TANDOSPIRONE
     Indication: PANIC DISORDER
     Dosage: 2 DF, BID
     Route: 048
     Dates: start: 201405, end: 2016
  4. SEROXAT [Suspect]
     Active Substance: PAROXETINE HYDROCHLORIDE
     Dosage: 20 MG
     Route: 048
     Dates: start: 2016, end: 201703
  5. SEROXAT [Suspect]
     Active Substance: PAROXETINE HYDROCHLORIDE
     Dosage: 10 MG, QD
     Route: 065
     Dates: start: 2017, end: 2019
  6. SERTRALINE [Suspect]
     Active Substance: SERTRALINE HYDROCHLORIDE
     Indication: PRODUCT USED FOR UNKNOWN INDICATION
     Dosage: UNK
     Route: 065
  7. SEROXAT [Suspect]
     Active Substance: PAROXETINE HYDROCHLORIDE
     Dosage: 30 MG, QD
     Route: 048
  8. PAROXETINE. [Suspect]
     Active Substance: PAROXETINE
     Indication: PRODUCT USED FOR UNKNOWN INDICATION
     Dosage: UNK
     Route: 065
     Dates: end: 2016
  9. LORAZEPAM. [Suspect]
     Active Substance: LORAZEPAM
     Indication: PRODUCT USED FOR UNKNOWN INDICATION
     Dosage: UNK
     Route: 065
     Dates: end: 2016
  10. SEROXAT [Suspect]
     Active Substance: PAROXETINE HYDROCHLORIDE
     Dosage: 50 MG, QD
     Route: 065
     Dates: start: 2019, end: 202003

REACTIONS (5)
  - Diabetes mellitus [Not Recovered/Not Resolved]
  - Disease recurrence [Not Recovered/Not Resolved]
  - Sexual dysfunction [Recovered/Resolved]
  - Drug ineffective [Unknown]
  - Calculus urinary [Recovered/Resolved]

NARRATIVE: CASE EVENT DATE: 201405
